FAERS Safety Report 18206990 (Version 1)
Quarter: 2020Q3

REPORT INFORMATION
  Report Type: Spontaneous
  Country: US (occurrence: US)
  Receive Date: 20200828
  Receipt Date: 20200828
  Transmission Date: 20201103
  Serious: Yes (Other)
  Sender: FDA-Public Use
  Company Number: US-PFIZER INC-2020333447

PATIENT
  Age: 59 Year
  Sex: Male

DRUGS (1)
  1. DOXORUBICIN HCL [Suspect]
     Active Substance: DOXORUBICIN HYDROCHLORIDE
     Indication: DIFFUSE LARGE B-CELL LYMPHOMA
     Dosage: UNK

REACTIONS (7)
  - Serum ferritin increased [Unknown]
  - Pyrexia [Unknown]
  - Hypotension [Unknown]
  - Cytokine release syndrome [Unknown]
  - Neoplasm progression [Unknown]
  - Tachycardia [Unknown]
  - C-reactive protein increased [Unknown]
